FAERS Safety Report 10602006 (Version 3)
Quarter: 2015Q2

REPORT INFORMATION
  Report Type: Spontaneous
  Country: US (occurrence: US)
  Receive Date: 20141124
  Receipt Date: 20150401
  Transmission Date: 20150821
  Serious: Yes (Life-Threatening, Hospitalization, Disabling)
  Sender: FDA-Public Use
  Company Number: US-BAYER-2014-170875

PATIENT
  Age: 20 Year
  Sex: Female
  Weight: 68.27 kg

DRUGS (5)
  1. MIRENA [Suspect]
     Active Substance: LEVONORGESTREL
     Indication: CONTRACEPTION
     Dosage: 20 MCG/24HR, CONT
     Route: 015
     Dates: start: 200311, end: 20131218
  2. MIRENA [Suspect]
     Active Substance: LEVONORGESTREL
     Indication: CONTRACEPTION
     Dosage: 20 MCG/24HR, CONT
     Route: 015
     Dates: start: 200401, end: 2007
  3. MIRENA [Suspect]
     Active Substance: LEVONORGESTREL
     Indication: CONTRACEPTION
     Dosage: 20 MCG/24HR, CONT
     Route: 015
     Dates: start: 20130509, end: 20131218
  4. MIRENA [Suspect]
     Active Substance: LEVONORGESTREL
     Indication: CONTRACEPTION
     Dosage: 20 MCG/24HR, CONT
     Route: 015
     Dates: start: 20130509, end: 20131218
  5. NUVARING [Concomitant]
     Active Substance: ETHINYL ESTRADIOL\ETONOGESTREL
     Dosage: UNK
     Dates: start: 2007, end: 2009

REACTIONS (25)
  - Device dislocation [None]
  - Device issue [None]
  - Procedural pain [None]
  - Migraine [None]
  - Pelvic pain [None]
  - Procedural pain [None]
  - Uterine perforation [None]
  - Anxiety [None]
  - Headache [None]
  - Device misuse [None]
  - Fatigue [None]
  - Pain [None]
  - Anhedonia [None]
  - Balance disorder [None]
  - Weight increased [None]
  - Panic reaction [None]
  - General physical health deterioration [None]
  - Injury [None]
  - Pregnancy with contraceptive device [None]
  - Device use error [None]
  - Abdominal pain lower [None]
  - Abdominal pain [None]
  - Dyspareunia [None]
  - Depression [None]
  - Feeling abnormal [None]

NARRATIVE: CASE EVENT DATE: 2003
